FAERS Safety Report 23306750 (Version 1)
Quarter: 2023Q4

REPORT INFORMATION
  Report Type: Spontaneous
  Country: US (occurrence: US)
  Receive Date: 20231218
  Receipt Date: 20231218
  Transmission Date: 20240109
  Serious: No
  Sender: FDA-Public Use
  Company Number: US-RECKITT BENCKISER HEALTHCARE INT LIMITED-RB-105946-2023

PATIENT
  Age: 90 Year
  Sex: Female

DRUGS (1)
  1. DELSYM [Interacting]
     Active Substance: DEXTROMETHORPHAN
     Indication: Cough
     Dosage: 14 TABLET
     Route: 048
     Dates: start: 20230827, end: 20230830

REACTIONS (1)
  - Drug ineffective for unapproved indication [Unknown]
